FAERS Safety Report 4687194-8 (Version None)
Quarter: 2005Q2

REPORT INFORMATION
  Report Type: 
  Country: None (occurrence: None)
  Receive Date: 20050607
  Receipt Date: 20050523
  Transmission Date: 20051028
  Serious: Yes (Hospitalization, Other)
  Sender: FDA-Public Use
  Company Number: 2005079102

PATIENT
  Age: 35 Year
  Sex: Female

DRUGS (3)
  1. BENADRYL [Suspect]
     Indication: MIGRAINE
     Dosage: (100 MG)
  2. ZOLOFT [Concomitant]
  3. SYNTHROID [Concomitant]

REACTIONS (4)
  - APNOEA [None]
  - CARDIAC ENZYMES INCREASED [None]
  - SOMNOLENCE [None]
  - WEIGHT DECREASED [None]
